FAERS Safety Report 17064712 (Version 1)
Quarter: 2019Q4

REPORT INFORMATION
  Report Type: Spontaneous
  Country: US (occurrence: US)
  Receive Date: 20191122
  Receipt Date: 20191122
  Transmission Date: 20200122
  Serious: Yes (Other)
  Sender: FDA-Public Use
  Company Number: US-009507513-1911USA005690

PATIENT
  Age: 55 Year
  Sex: Female

DRUGS (1)
  1. COZAAR [Suspect]
     Active Substance: LOSARTAN POTASSIUM
     Indication: PRODUCT USED FOR UNKNOWN INDICATION
     Dosage: UNK
     Route: 048
     Dates: start: 201806, end: 20191012

REACTIONS (5)
  - Dacryocystitis [Recovered/Resolved]
  - Lacrimation increased [Recovered/Resolved]
  - Periorbital oedema [Recovered/Resolved]
  - Swelling of eyelid [Recovered/Resolved]
  - Episcleritis [Recovered/Resolved]

NARRATIVE: CASE EVENT DATE: 201807
